FAERS Safety Report 11965361 (Version 1)
Quarter: 2016Q1

REPORT INFORMATION
  Report Type: Spontaneous
  Country: None (occurrence: US)
  Receive Date: 20160127
  Receipt Date: 20160127
  Transmission Date: 20160526
  Serious: No
  Sender: FDA-Public Use
  Company Number: US-MERZ NORTH AMERICA, INC.-16MRZ-00048

PATIENT
  Sex: Female

DRUGS (1)
  1. XEOMIN [Suspect]
     Active Substance: INCOBOTULINUMTOXINA
     Indication: MEIGE^S SYNDROME
     Dosage: 160 UNITS RIGHT TOTAL?160 UNITS LEFT   TOTAL??FACE?FRONTALIS: RIGHT 5, LEFT 5?PROCERUS: RIGHT 5, LEF
     Dates: start: 20160108

REACTIONS (11)
  - Headache [None]
  - Immobile [None]
  - Facial pain [None]
  - Musculoskeletal stiffness [None]
  - Pain in extremity [None]
  - Neck pain [None]
  - Abdominal discomfort [None]
  - Posture abnormal [None]
  - Pain [None]
  - Dysphagia [None]
  - Nausea [None]
